FAERS Safety Report 6129470-8 (Version None)
Quarter: 2009Q1

REPORT INFORMATION
  Report Type: 
  Country: None (occurrence: None)
  Receive Date: 20090324
  Receipt Date: 20090319
  Transmission Date: 20090719
  Serious: Yes (Other)
  Sender: FDA-Public Use
  Company Number: US-JNJFOC-20090305229

PATIENT
  Sex: Male

DRUGS (8)
  1. FENTANYL TRANSDERMAL SYSTEM [Suspect]
     Indication: PAIN IN EXTREMITY
     Route: 062
  2. FENTANYL TRANSDERMAL SYSTEM [Suspect]
     Indication: BACK PAIN
     Route: 062
  3. TEKTURNA [Concomitant]
     Indication: BLOOD PRESSURE
     Route: 048
  4. MUCINEX [Concomitant]
     Indication: PRODUCTIVE COUGH
     Route: 048
  5. CRESTOR [Concomitant]
     Indication: BLOOD CHOLESTEROL INCREASED
     Route: 048
  6. UNSPECIFIED NASAL SPRAY [Concomitant]
     Indication: NASAL TURBINATE HYPERTROPHY
     Route: 045
  7. SENNA [Concomitant]
     Indication: CONSTIPATION
     Route: 065
  8. PERCOCET [Concomitant]
     Indication: PAIN
     Dosage: 10-325 MG EVERY 4 HOURS AS NEEDED
     Route: 048

REACTIONS (2)
  - BODY TEMPERATURE DECREASED [None]
  - HYPERHIDROSIS [None]
